FAERS Safety Report 8507828-7 (Version None)
Quarter: 2012Q3

REPORT INFORMATION
  Report Type: 
  Country: None (occurrence: None)
  Receive Date: 20120713
  Receipt Date: 20120629
  Transmission Date: 20120928
  Serious: Yes (Other)
  Sender: FDA-Public Use
  Company Number: GB-JNJFOC-20120700080

PATIENT
  Sex: Male

DRUGS (2)
  1. ROGAINE EXTRA STRENGTH (FOR MEN) [Suspect]
     Route: 065
  2. ROGAINE EXTRA STRENGTH (FOR MEN) [Suspect]
     Indication: PRODUCT USED FOR UNKNOWN INDICATION
     Route: 065
     Dates: start: 20120512, end: 20120625

REACTIONS (11)
  - PALPITATIONS [None]
  - CONFUSIONAL STATE [None]
  - ASTHENIA [None]
  - DIZZINESS [None]
  - ALOPECIA [None]
  - HYPOTENSION [None]
  - DYSPNOEA [None]
  - CHEST PAIN [None]
  - HEADACHE [None]
  - HYPERTENSION [None]
  - CHEST DISCOMFORT [None]
